FAERS Safety Report 10498405 (Version 1)
Quarter: 2014Q4

REPORT INFORMATION
  Report Type: Spontaneous
  Country: US (occurrence: None)
  Receive Date: 20141003
  Receipt Date: 20141003
  Transmission Date: 20150528
  Serious: No
  Sender: FDA-Public Use
  Company Number: None

PATIENT
  Age: 63 Year
  Sex: Female
  Weight: 78.47 kg

DRUGS (3)
  1. ARTHROTEC [Suspect]
     Active Substance: DICLOFENAC SODIUM\MISOPROSTOL
     Indication: RHEUMATOID ARTHRITIS
     Dates: start: 20140915, end: 20140920
  2. AMOXICILLIN. [Suspect]
     Active Substance: AMOXICILLIN
  3. ARTHROTEC [Suspect]
     Active Substance: DICLOFENAC SODIUM\MISOPROSTOL
     Indication: SINUSITIS
     Dates: start: 20140915, end: 20140920

REACTIONS (4)
  - Hepatic enzyme increased [None]
  - Abdominal pain [None]
  - Flatulence [None]
  - Gastric disorder [None]

NARRATIVE: CASE EVENT DATE: 20140915
